FAERS Safety Report 6341107-1 (Version None)
Quarter: 2009Q3

REPORT INFORMATION
  Report Type: 
  Country: None (occurrence: None)
  Receive Date: 20090904
  Receipt Date: 20090831
  Transmission Date: 20100115
  Serious: Yes (Hospitalization)
  Sender: FDA-Public Use
  Company Number: PL-ROCHE-649631

PATIENT
  Sex: Female
  Weight: 73 kg

DRUGS (7)
  1. INTERFERON ALFA-2A [Suspect]
     Route: 058
     Dates: start: 20090403
  2. BEVACIZUMAB [Suspect]
     Route: 042
     Dates: start: 20090403
  3. LACIDIPINE [Concomitant]
     Dates: start: 20030101
  4. CAPTOPRIL [Concomitant]
     Dates: start: 20030101
  5. ALLOPURINOL [Concomitant]
     Indication: PROPHYLAXIS
     Dates: start: 20090424
  6. PHOSPHOLIPID [Concomitant]
     Dosage: INDICATION: PREVENTION OF AST, ALT
     Dates: start: 20090709
  7. ORNITHINE [Concomitant]
     Dosage: DRUG REPORTED: ORNITHINE ASPARTATE, INDICATION: PREVENTION OF AE (AST, ALT)
     Dates: start: 20090709

REACTIONS (1)
  - NASAL SEPTUM DISORDER [None]
